FAERS Safety Report 12359215 (Version 2)
Quarter: 2016Q2

REPORT INFORMATION
  Report Type: Report from Study
  Country: CR (occurrence: CR)
  Receive Date: 20160512
  Receipt Date: 20160519
  Transmission Date: 20160815
  Serious: Yes (Other)
  Sender: FDA-Public Use
  Company Number: PHHY2016CR062281

PATIENT
  Age: 42 Year
  Sex: Female
  Weight: 69 kg

DRUGS (3)
  1. GILENYA [Suspect]
     Active Substance: FINGOLIMOD HYDROCHLORIDE
     Indication: MULTIPLE SCLEROSIS
     Dosage: 0.5 MG, QD
     Route: 048
     Dates: start: 20150530
  2. FLUOXETIN [Concomitant]
     Active Substance: FLUOXETINE HYDROCHLORIDE
     Indication: PRODUCT USED FOR UNKNOWN INDICATION
     Dosage: UNK, TID
     Route: 065
  3. EPIVAL [Concomitant]
     Active Substance: DIVALPROEX SODIUM
     Indication: PAIN IN EXTREMITY
     Dosage: UNK, TID
     Route: 048

REACTIONS (7)
  - Dizziness [Unknown]
  - Headache [Unknown]
  - Fatigue [Unknown]
  - Balance disorder [Unknown]
  - Gait disturbance [Unknown]
  - Back pain [Unknown]
  - Multiple sclerosis relapse [Recovering/Resolving]
